FAERS Safety Report 7903703-7 (Version None)
Quarter: 2011Q4

REPORT INFORMATION
  Report Type: 
  Country: None (occurrence: None)
  Receive Date: 20111109
  Receipt Date: 20111102
  Transmission Date: 20120403
  Serious: Yes (Other)
  Sender: FDA-Public Use
  Company Number: US-BAYER-2011-107091

PATIENT
  Sex: Female

DRUGS (2)
  1. IBUPROFEN [Suspect]
     Indication: DYSMENORRHOEA
  2. ALEVE (CAPLET) [Suspect]
     Indication: DYSMENORRHOEA
     Dosage: CONSUMER TOOK 4 TABLETS IN 1 DAY. PACKAGE SIZE: 200CT
     Route: 048

REACTIONS (2)
  - URINARY RETENTION [None]
  - VOMITING [None]
